FAERS Safety Report 8592921 (Version 3)
Quarter: 2012Q4

REPORT INFORMATION
  Report Type: Report from Study
  Country: FR (occurrence: FR)
  Receive Date: 20120604
  Receipt Date: 20121210
  Transmission Date: 20130627
  Serious: Yes (Life-Threatening, Hospitalization)
  Sender: FDA-Public Use
  Company Number: FR-BIOGENIDEC-2012BI018489

PATIENT
  Age: 56 Year
  Sex: Female

DRUGS (8)
  1. TYSABRI [Suspect]
     Indication: MULTIPLE SCLEROSIS
     Route: 042
     Dates: start: 20070806, end: 20090331
  2. SOLUMEDROL [Concomitant]
     Indication: MULTIPLE SCLEROSIS
     Dates: start: 200903, end: 20120404
  3. MOPRAL [Concomitant]
  4. BETASERC [Concomitant]
  5. ALFUZOSINE [Concomitant]
  6. PROGESTERONE [Concomitant]
  7. TANGANIL [Concomitant]
     Indication: MENIERE^S DISEASE
  8. LYRICA [Concomitant]
     Indication: PARAESTHESIA

REACTIONS (1)
  - Acute myeloid leukaemia [Not Recovered/Not Resolved]
